FAERS Safety Report 4653093-0 (Version None)
Quarter: 2005Q2

REPORT INFORMATION
  Report Type: 
  Country: None (occurrence: None)
  Receive Date: 20050503
  Receipt Date: 20050420
  Transmission Date: 20051028
  Serious: Yes (Other)
  Sender: FDA-Public Use
  Company Number: 2005064200

PATIENT
  Age: 62 Year
  Sex: Female
  Weight: 69.4003 kg

DRUGS (11)
  1. BEXTRA [Suspect]
     Indication: BURSITIS
     Dosage: 20 MG (20 MG, 1 IN 1 D), ORAL
     Route: 048
     Dates: start: 20040101, end: 20050401
  2. RANITIDINE HYDROCHLORIDE [Concomitant]
  3. BACLOFEN [Concomitant]
  4. BUSPIRONE HCL [Concomitant]
  5. ALL OTHER THERAPEUTIC PRODUCTS (ALL OTHER THERAPEUTIC PRODUCTS) [Concomitant]
  6. LIDOCAINE [Concomitant]
  7. LAMOTRIGINE [Concomitant]
  8. BUDESONIDE [Concomitant]
  9. CALCITONIN, SALMON (CALCITONIN, SALMON) [Concomitant]
  10. BUDESONIDE [Concomitant]
  11. SODIUM CHLORIDE 0.9% [Concomitant]

REACTIONS (4)
  - ABDOMINAL ADHESIONS [None]
  - RASH MACULAR [None]
  - RASH PRURITIC [None]
  - SCRATCH [None]
